FAERS Safety Report 11745154 (Version 1)
Quarter: 2015Q4

REPORT INFORMATION
  Report Type: Spontaneous
  Country: US (occurrence: US)
  Receive Date: 20151117
  Receipt Date: 20151117
  Transmission Date: 20160304
  Serious: No
  Sender: FDA-Public Use
  Company Number: US-I09001-15-00099

PATIENT
  Sex: Female

DRUGS (3)
  1. ZORVOLEX [Suspect]
     Active Substance: DICLOFENAC
     Indication: ARTHRITIS
     Route: 048
     Dates: start: 20150630, end: 20150701
  2. ZORVOLEX [Suspect]
     Active Substance: DICLOFENAC
     Indication: ARTHRITIS
  3. ZORVOLEX [Suspect]
     Active Substance: DICLOFENAC
     Indication: ARTHRALGIA

REACTIONS (4)
  - Cold sweat [Recovered/Resolved]
  - Tremor [Recovered/Resolved]
  - Nausea [Recovered/Resolved]
  - Vomiting [Unknown]

NARRATIVE: CASE EVENT DATE: 2015
